FAERS Safety Report 7120246-1 (Version None)
Quarter: 2010Q4

REPORT INFORMATION
  Report Type: 
  Country: None (occurrence: None)
  Receive Date: 20101123
  Receipt Date: 20101112
  Transmission Date: 20110411
  Serious: Yes (Hospitalization)
  Sender: FDA-Public Use
  Company Number: US-MERCK-1011USA01707

PATIENT
  Age: 46 Year
  Sex: Male

DRUGS (2)
  1. COZAAR [Suspect]
     Indication: HYPERTENSION
     Route: 048
  2. COZAAR [Suspect]
     Route: 048

REACTIONS (2)
  - BLOOD PRESSURE INCREASED [None]
  - MALAISE [None]
